FAERS Safety Report 6015345-1 (Version None)
Quarter: 2008Q4

REPORT INFORMATION
  Report Type: 
  Country: None (occurrence: None)
  Receive Date: 20081222
  Receipt Date: 20081215
  Transmission Date: 20090506
  Serious: Yes (Other)
  Sender: FDA-Public Use
  Company Number: DE-WYE-H07311608

PATIENT
  Sex: Male

DRUGS (1)
  1. CORDAREX [Suspect]
     Indication: VENTRICULAR ARRHYTHMIA
     Route: 048

REACTIONS (2)
  - PULMONARY HYPERTENSION [None]
  - THROAT IRRITATION [None]
